FAERS Safety Report 10725287 (Version 1)
Quarter: 2015Q1

REPORT INFORMATION
  Report Type: Spontaneous
  Country: JP (occurrence: JP)
  Receive Date: 20150120
  Receipt Date: 20150120
  Transmission Date: 20150721
  Serious: Yes (Hospitalization, Other)
  Sender: FDA-Public Use
  Company Number: JP-BRISTOL-MYERS SQUIBB COMPANY-BMS-2014-005302

PATIENT
  Age: 71 Year
  Sex: Male

DRUGS (5)
  1. METGLUCO [Suspect]
     Active Substance: METFORMIN HYDROCHLORIDE
     Indication: PRODUCT USED FOR UNKNOWN INDICATION
     Dosage: 750 MG, UNK RESTARTED AT AUG2008
     Route: 048
     Dates: start: 200602
  2. BERIZYM                            /01945301/ [Concomitant]
  3. NOVORAPID [Concomitant]
     Active Substance: INSULIN ASPART
  4. PIOGLITAZONE HYDROCHLORIDE. [Concomitant]
     Active Substance: PIOGLITAZONE HYDROCHLORIDE
  5. URSODEOXYCHOLIC ACID [Concomitant]
     Active Substance: URSODIOL

REACTIONS (4)
  - Depressed level of consciousness [Unknown]
  - Hypoproteinaemia [Unknown]
  - Hypoglycaemia [Unknown]
  - Malaise [Unknown]
